FAERS Safety Report 4869700-3 (Version None)
Quarter: 2005Q4

REPORT INFORMATION
  Report Type: 
  Country: None (occurrence: None)
  Receive Date: 20051223
  Receipt Date: 20051208
  Transmission Date: 20060501
  Serious: Yes (Hospitalization)
  Sender: FDA-Public Use
  Company Number: DSK-2005-13649

PATIENT
  Age: 47 Year
  Sex: Female

DRUGS (10)
  1. EVOXAC [Suspect]
     Indication: SJOGREN'S SYNDROME
     Dosage: PER ORAL
     Route: 048
     Dates: start: 20051201, end: 20051207
  2. ENBREL (ETANERCEPT) (ETANERCEPT) [Concomitant]
  3. RHEUMATREX (METHOTREXATE SODIUM) (METHOTREXATE SODIUM) [Concomitant]
  4. NABOAL SR( DICLOFENAC SODIUM) (DICLOFENAC SODIUM) [Concomitant]
  5. ACINON (NIZATIDINE) (NIZATIDINE) [Concomitant]
  6. SELBEX (TEPRENONE) (TEPRENONE) [Concomitant]
  7. BENET (RISEDRONATE SODIUM) (RISEDRONATE SODIUM) [Concomitant]
  8. PREDNISOLONE [Concomitant]
  9. METHYCORAL (MECOBALAMIN) (MECOBALAMIN) [Concomitant]
  10. NEUROTROPIN (ORGAN LYSATE, STANDARDIZED) (ORGAN LYSATE, STANDARDIZED) [Concomitant]

REACTIONS (5)
  - CEREBRAL INFARCTION [None]
  - DELIRIUM [None]
  - DYSPHONIA [None]
  - EXCITABILITY [None]
  - RESTLESSNESS [None]
